FAERS Safety Report 16549430 (Version 5)
Quarter: 2020Q1

REPORT INFORMATION
  Report Type: Report from Study
  Country: BE (occurrence: BE)
  Receive Date: 20190710
  Receipt Date: 20200117
  Transmission Date: 20200409
  Serious: Yes (Death, Hospitalization, Other)
  Sender: FDA-Public Use
  Company Number: BE-BRISTOL-MYERS SQUIBB COMPANY-BMS-2019-066889

PATIENT
  Age: 75 Year
  Sex: Male
  Weight: 98 kg

DRUGS (1)
  1. NIVOLUMAB [Suspect]
     Active Substance: NIVOLUMAB
     Indication: SMALL CELL LUNG CANCER
     Dosage: 3 MILLIGRAM/KILOGRAM (300MG)
     Route: 065
     Dates: start: 201806, end: 20180824

REACTIONS (4)
  - Malignant neoplasm progression [Unknown]
  - Chronic obstructive pulmonary disease [Unknown]
  - Pneumonia [Fatal]
  - Gastrointestinal haemorrhage [Unknown]
